FAERS Safety Report 21542966 (Version 14)
Quarter: 2023Q1

REPORT INFORMATION
  Report Type: Report from Study
  Country: GB (occurrence: GB)
  Receive Date: 20221102
  Receipt Date: 20230203
  Transmission Date: 20230418
  Serious: Yes (Hospitalization)
  Sender: FDA-Public Use
  Company Number: GB-ABBVIE-4184915

PATIENT
  Age: 73 Year
  Sex: Male

DRUGS (29)
  1. CARBIDOPA\LEVODOPA [Suspect]
     Active Substance: CARBIDOPA\LEVODOPA
     Indication: Parkinson^s disease
     Dosage: MD:11.4 ED:2.0,CR:3.8, 20MGS/5MGS
     Route: 050
     Dates: start: 2022, end: 202211
  2. CARBIDOPA\LEVODOPA [Suspect]
     Active Substance: CARBIDOPA\LEVODOPA
     Dosage: DOSE INCREASES, MD:11.6 MLS, ED:2.0MLS, CR:4.0MLS/HR?LAST ADMINISTRATION DOSE: 2022
     Route: 050
     Dates: start: 202211
  3. CARBIDOPA\LEVODOPA [Suspect]
     Active Substance: CARBIDOPA\LEVODOPA
     Dosage: DUODOPA 20MGS/5MGS; MD: 11.6MLS, CR: 4.0MLS, ED:2.2MLS
     Route: 050
     Dates: start: 2022, end: 2022
  4. CARBIDOPA\LEVODOPA [Suspect]
     Active Substance: CARBIDOPA\LEVODOPA
     Dosage: 20MGS/5MGS MD:11.4 ED:2.0,CR:3.6
     Route: 050
     Dates: start: 20230119
  5. FUCIDIN [Concomitant]
     Active Substance: FUSIDATE SODIUM
     Indication: Product used for unknown indication
  6. CALCIUM CHLORIDE\POTASSIUM CHLORIDE\SODIUM CHLORIDE\SODIUM LACTATE [Concomitant]
     Active Substance: CALCIUM CHLORIDE\POTASSIUM CHLORIDE\SODIUM CHLORIDE\SODIUM LACTATE
     Indication: Product used for unknown indication
  7. ROTIGOTINE [Concomitant]
     Active Substance: ROTIGOTINE
     Indication: Parkinson^s disease
     Route: 062
  8. ROPINIROLE [Concomitant]
     Active Substance: ROPINIROLE
     Indication: Parkinson^s disease
     Dosage: AT 8 PM
     Route: 048
  9. ROPINIROLE [Concomitant]
     Active Substance: ROPINIROLE
     Indication: Parkinson^s disease
     Route: 048
  10. APIXABAN [Suspect]
     Active Substance: APIXABAN
     Indication: Heart rate irregular
     Dosage: FREQUENCY TEXT: AT 8PM OVER THE WEEKEND
     Route: 048
  11. BISOPROLOL [Suspect]
     Active Substance: BISOPROLOL
     Indication: Heart rate irregular
     Dosage: FREQUENCY TEXT: OVER THE WEEKEND
     Route: 048
  12. RETINOL [Concomitant]
     Active Substance: RETINOL
     Indication: Product used for unknown indication
     Route: 065
  13. REGITINE [Concomitant]
     Active Substance: PHENTOLAMINE MESYLATE
     Indication: Product used for unknown indication
  14. SINEMET [Concomitant]
     Active Substance: CARBIDOPA\LEVODOPA
     Indication: Product used for unknown indication
     Dosage: 100/25MG
  15. SINEMET [Concomitant]
     Active Substance: CARBIDOPA\LEVODOPA
     Indication: Product used for unknown indication
     Dosage: 100/25MG
  16. SINEMET [Concomitant]
     Active Substance: CARBIDOPA\LEVODOPA
     Indication: Product used for unknown indication
     Dosage: 25/100MGS
  17. SINEMET [Concomitant]
     Active Substance: CARBIDOPA\LEVODOPA
     Indication: Product used for unknown indication
     Dosage: 100/25MG
  18. SINEMET [Concomitant]
     Active Substance: CARBIDOPA\LEVODOPA
     Indication: Product used for unknown indication
     Dosage: 25/100MGS
  19. SINEMET [Concomitant]
     Active Substance: CARBIDOPA\LEVODOPA
     Indication: Product used for unknown indication
     Dosage: 25/100MGS
  20. SINEMET [Concomitant]
     Active Substance: CARBIDOPA\LEVODOPA
     Indication: Product used for unknown indication
     Dosage: 25/100MGS
  21. SINEMET [Concomitant]
     Active Substance: CARBIDOPA\LEVODOPA
     Indication: Product used for unknown indication
     Dosage: 100/25MG, HALF SINEMET, FREQUENCY TEXT: X2 AT 8PM
     Route: 065
  22. CARBIDOPA\LEVODOPA [Concomitant]
     Active Substance: CARBIDOPA\LEVODOPA
     Indication: Parkinson^s disease
     Dosage: 25/100MGS X 2
     Route: 048
  23. CARBIDOPA\LEVODOPA [Concomitant]
     Active Substance: CARBIDOPA\LEVODOPA
     Indication: Parkinson^s disease
     Dosage: 25/100MGS X 1
  24. CARBIDOPA\LEVODOPA [Concomitant]
     Active Substance: CARBIDOPA\LEVODOPA
     Indication: Parkinson^s disease
     Dosage: 25/100MGS X 1
  25. CARBIDOPA\LEVODOPA [Concomitant]
     Active Substance: CARBIDOPA\LEVODOPA
     Indication: Parkinson^s disease
     Dosage: 25/100MGS X 2
     Route: 048
  26. CARBIDOPA\LEVODOPA [Concomitant]
     Active Substance: CARBIDOPA\LEVODOPA
     Indication: Parkinson^s disease
     Dosage: 25/100MGS X 2
     Route: 048
  27. DIGOXIN [Concomitant]
     Active Substance: DIGOXIN
     Indication: Product used for unknown indication
  28. AMANTADINE [Concomitant]
     Active Substance: AMANTADINE
     Indication: Parkinson^s disease
     Route: 048
  29. VERAPAMIL [Concomitant]
     Active Substance: VERAPAMIL HYDROCHLORIDE
     Indication: Atrial fibrillation

REACTIONS (41)
  - Arrhythmia [Not Recovered/Not Resolved]
  - Device connection issue [Recovered/Resolved]
  - Paraesthesia [Recovering/Resolving]
  - Peripheral swelling [Recovering/Resolving]
  - Stoma site erythema [Recovering/Resolving]
  - Abnormal dreams [Unknown]
  - Malaise [Unknown]
  - Weight decreased [Not Recovered/Not Resolved]
  - Stoma site hypergranulation [Unknown]
  - Asthenia [Unknown]
  - Dizziness [Recovered/Resolved]
  - Hypertension [Unknown]
  - Troponin increased [Unknown]
  - Removal of inert matter from skin or subcutaneous tissue [Unknown]
  - Muscle rigidity [Not Recovered/Not Resolved]
  - Feeling abnormal [Recovered/Resolved]
  - Dysstasia [Unknown]
  - Incorrect dose administered [Unknown]
  - Stoma site odour [Recovering/Resolving]
  - Freezing phenomenon [Not Recovered/Not Resolved]
  - Grip strength decreased [Unknown]
  - Food interaction [Not Recovered/Not Resolved]
  - Device dislocation [Not Recovered/Not Resolved]
  - On and off phenomenon [Unknown]
  - Stoma site inflammation [Not Recovered/Not Resolved]
  - Hypotension [Not Recovered/Not Resolved]
  - Atrial fibrillation [Not Recovered/Not Resolved]
  - Hypoaesthesia [Recovering/Resolving]
  - Tremor [Unknown]
  - Malabsorption [Not Recovered/Not Resolved]
  - Loss of consciousness [Unknown]
  - Hallucination [Recovering/Resolving]
  - Bradykinesia [Unknown]
  - Adverse drug reaction [Not Recovered/Not Resolved]
  - Fall [Unknown]
  - Dyskinesia [Recovered/Resolved]
  - Hypophagia [Unknown]
  - Speech disorder [Unknown]
  - Fluid intake reduced [Unknown]
  - Cardiac disorder [Not Recovered/Not Resolved]
  - Heart rate irregular [Not Recovered/Not Resolved]

NARRATIVE: CASE EVENT DATE: 20220101
